FAERS Safety Report 13016560 (Version 1)
Quarter: 2016Q4

REPORT INFORMATION
  Report Type: Spontaneous
  Country: US (occurrence: US)
  Receive Date: 20161212
  Receipt Date: 20161212
  Transmission Date: 20170207
  Serious: No
  Sender: FDA-Public Use
  Company Number: US-JNJFOC-20161108314

PATIENT
  Age: 80 Year
  Sex: Female
  Weight: 54.43 kg

DRUGS (2)
  1. XARELTO [Suspect]
     Active Substance: RIVAROXABAN
     Indication: LOWER LIMB FRACTURE
     Route: 048
     Dates: start: 20160916, end: 20160916
  2. XARELTO [Suspect]
     Active Substance: RIVAROXABAN
     Indication: SURGERY
     Route: 048
     Dates: start: 20160916, end: 20160916

REACTIONS (4)
  - Chest discomfort [Unknown]
  - Pruritus [Unknown]
  - Product use issue [Unknown]
  - Off label use [Unknown]

NARRATIVE: CASE EVENT DATE: 20160916
